FAERS Safety Report 23482644 (Version 1)
Quarter: 2024Q1

REPORT INFORMATION
  Report Type: Spontaneous
  Country: US (occurrence: None)
  Receive Date: 20240205
  Receipt Date: 20240205
  Transmission Date: 20240410
  Serious: Yes (Hospitalization)
  Sender: FDA-Public Use
  Company Number: None

PATIENT
  Sex: Female

DRUGS (2)
  1. PIQRAY [Suspect]
     Active Substance: ALPELISIB
     Indication: Bone cancer
     Dosage: 300 MG ONCE A DAY ORAL
     Route: 048
     Dates: start: 202401
  2. PIQRAY [Suspect]
     Active Substance: ALPELISIB
     Indication: Breast cancer female

REACTIONS (1)
  - Emergency care [None]
